FAERS Safety Report 5146030-6 (Version None)
Quarter: 2006Q4

REPORT INFORMATION
  Report Type: 
  Country: None (occurrence: None)
  Receive Date: 20061108
  Receipt Date: 20030501
  Transmission Date: 20070319
  Serious: Yes (Other)
  Sender: FDA-Public Use
  Company Number: US-GLAXOSMITHKLINE-A0607373A

PATIENT
  Sex: Female
  Weight: 59.5 kg

DRUGS (7)
  1. LOTRONEX [Suspect]
     Dosage: 1MG TWICE PER DAY
     Route: 048
     Dates: start: 20000401
  2. PEPCID [Concomitant]
  3. SINEQUAN [Concomitant]
  4. PREMARIN [Concomitant]
  5. NICOTROL [Concomitant]
  6. PREVACID [Concomitant]
  7. VIOXX [Concomitant]

REACTIONS (9)
  - ABDOMINAL PAIN UPPER [None]
  - CHOLECYSTITIS [None]
  - CONSTIPATION [None]
  - DIARRHOEA [None]
  - DIVERTICULUM [None]
  - GALLBLADDER DISORDER [None]
  - GASTROINTESTINAL INJURY [None]
  - NAUSEA [None]
  - OCCULT BLOOD POSITIVE [None]
